FAERS Safety Report 6907679-0 (Version None)
Quarter: 2010Q3

REPORT INFORMATION
  Report Type: 
  Country: None (occurrence: None)
  Receive Date: 20100805
  Receipt Date: 20100727
  Transmission Date: 20110219
  Serious: Yes (Other)
  Sender: FDA-Public Use
  Company Number: US-NOVOPROD-312333

PATIENT
  Sex: Female

DRUGS (7)
  1. VICTOZA [Suspect]
     Indication: TYPE 2 DIABETES MELLITUS
     Dosage: .6 MG, QD
     Route: 058
     Dates: start: 20100601
  2. VICTOZA [Suspect]
     Dosage: 1.2 MG, QD
  3. VICTOZA [Suspect]
     Dosage: 0.6 MG, QD
     Route: 058
     Dates: start: 20100720, end: 20100722
  4. ATENOLOL [Concomitant]
     Indication: HYPERTENSION
     Dosage: UNK
     Route: 048
  5. LOTENSIN HCT [Concomitant]
     Indication: HYPERTENSION
     Dosage: UNK
     Route: 048
  6. LIPITOR [Concomitant]
     Indication: BLOOD CHOLESTEROL INCREASED
     Dosage: UNK
     Route: 048
  7. METFORMIN HCL [Concomitant]
     Indication: TYPE 2 DIABETES MELLITUS
     Dosage: UNK
     Route: 048

REACTIONS (8)
  - DECREASED APPETITE [None]
  - DIZZINESS [None]
  - HEADACHE [None]
  - HYPERSENSITIVITY [None]
  - IMPAIRED GASTRIC EMPTYING [None]
  - PALLOR [None]
  - TREMOR [None]
  - VOMITING [None]
